FAERS Safety Report 9168793 (Version 1)
Quarter: 2013Q1

REPORT INFORMATION
  Report Type: Spontaneous
  Country: US (occurrence: US)
  Receive Date: 20130318
  Receipt Date: 20130318
  Transmission Date: 20140127
  Serious: No
  Sender: FDA-Public Use
  Company Number: US-PFIZER INC-2013087840

PATIENT
  Age: 27 Year
  Sex: Female
  Weight: 83.9 kg

DRUGS (2)
  1. CELEBREX [Suspect]
     Indication: PLANTAR FASCIITIS
     Dosage: 200 MG, DAILY
     Dates: start: 201303
  2. CELEBREX [Suspect]
     Indication: ARTHRITIS

REACTIONS (4)
  - Depressed mood [Not Recovered/Not Resolved]
  - Crying [Not Recovered/Not Resolved]
  - Anxiety [Not Recovered/Not Resolved]
  - Emotional disorder [Not Recovered/Not Resolved]
